FAERS Safety Report 9666290 (Version 1)
Quarter: 2013Q4

REPORT INFORMATION
  Report Type: Spontaneous
  Country: US (occurrence: None)
  Receive Date: 20131101
  Receipt Date: 20131101
  Transmission Date: 20140711
  Serious: Yes (Hospitalization)
  Sender: FDA-Public Use
  Company Number: None

PATIENT
  Age: 16 Year
  Sex: Male
  Weight: 77 kg

DRUGS (1)
  1. SULFAMETHOXAZOLE-TRIMETHOPRIM [Suspect]
     Indication: CELLULITIS

REACTIONS (2)
  - Haematochezia [None]
  - Immune thrombocytopenic purpura [None]
